FAERS Safety Report 5535835-5 (Version None)
Quarter: 2007Q4

REPORT INFORMATION
  Report Type: 
  Country: None (occurrence: None)
  Receive Date: 20071204
  Receipt Date: 20071204
  Transmission Date: 20080405
  Serious: No
  Sender: FDA-Public Use
  Company Number: None

PATIENT
  Age: 48 Year
  Sex: Male
  Weight: 103.4201 kg

DRUGS (2)
  1. AMLODIPINE [Suspect]
     Indication: HYPERTENSION
     Dosage: 5MG  1 TAB DAILY  PO
     Route: 048
     Dates: start: 20071017, end: 20071128
  2. AMLODIPINE [Suspect]
     Dosage: 10MG  1 TAB DAILY  PO
     Route: 048
     Dates: start: 20071128, end: 20071202

REACTIONS (4)
  - IMPAIRED WORK ABILITY [None]
  - LOSS OF CONTROL OF LEGS [None]
  - MUSCLE SPASMS [None]
  - SLEEP DISORDER DUE TO GENERAL MEDICAL CONDITION, INSOMNIA TYPE [None]
